FAERS Safety Report 5052288-4 (Version None)
Quarter: 2006Q3

REPORT INFORMATION
  Report Type: 
  Country: None (occurrence: None)
  Receive Date: 20060717
  Receipt Date: 20060704
  Transmission Date: 20061208
  Serious: Yes (Other)
  Sender: FDA-Public Use
  Company Number: US-KINGPHARMUSA00001-K200600887

PATIENT
  Sex: Male

DRUGS (1)
  1. ALTACE [Suspect]

REACTIONS (6)
  - ANGIONEUROTIC OEDEMA [None]
  - CHEST PAIN [None]
  - DYSPHAGIA [None]
  - DYSPNOEA [None]
  - OESOPHAGEAL OEDEMA [None]
  - SALIVARY HYPERSECRETION [None]
